FAERS Safety Report 6612334-0 (Version None)
Quarter: 2010Q1

REPORT INFORMATION
  Report Type: 
  Country: None (occurrence: None)
  Receive Date: 20100303
  Receipt Date: 20100224
  Transmission Date: 20100710
  Serious: Yes (Other)
  Sender: FDA-Public Use
  Company Number: JP-PFIZER INC-2010024505

PATIENT
  Age: 48 Year
  Sex: Female

DRUGS (3)
  1. LIPITOR [Suspect]
     Dosage: 5 MG, UNKNOWN/D
     Route: 048
     Dates: end: 20091021
  2. DIOVAN [Suspect]
     Dosage: 80 MG, UNKNOWN/D
     Route: 048
  3. ZYLORIC ^FAES^ [Suspect]
     Dosage: 50 MG, UNKNOWN/D
     Route: 048

REACTIONS (1)
  - LENTIGO [None]
